FAERS Safety Report 7280043-3 (Version None)
Quarter: 2011Q1

REPORT INFORMATION
  Report Type: 
  Country: None (occurrence: None)
  Receive Date: 20110126
  Receipt Date: 20110113
  Transmission Date: 20110831
  Serious: Yes (Hospitalization)
  Sender: FDA-Public Use
  Company Number: UTC-004371

PATIENT
  Age: 27 Year
  Sex: Male
  Weight: 77.1 kg

DRUGS (8)
  1. TRACLEER [Concomitant]
  2. COUMADIN [Concomitant]
  3. DEPAKOTE [Concomitant]
  4. REMODULIN [Suspect]
     Indication: PULMONARY ARTERIAL HYPERTENSION
     Dosage: 72 UG/KG (0.05 UG/KG,1 IN 1 MIN),INTRAVENOUS
     Route: 042
  5. PROPRANOLOL [Concomitant]
  6. REVATIO [Concomitant]
  7. MAGNESIUM OXIDE (MAGNESIUM OXIDE) [Concomitant]
  8. OXYGEN (OXYGEN) [Concomitant]

REACTIONS (5)
  - FALL [None]
  - SUBARACHNOID HAEMORRHAGE [None]
  - SYNCOPE [None]
  - HEAD INJURY [None]
  - AMNESIA [None]
